FAERS Safety Report 9953930 (Version 1)
Quarter: 2014Q1

REPORT INFORMATION
  Report Type: Spontaneous
  Country: MX (occurrence: MX)
  Receive Date: 20140304
  Receipt Date: 20140304
  Transmission Date: 20141002
  Serious: Yes (Hospitalization)
  Sender: FDA-Public Use
  Company Number: MX-PFIZER INC-2014059748

PATIENT
  Age: 75 Year
  Sex: Female

DRUGS (1)
  1. NORVAS [Suspect]
     Indication: HYPERTENSION
     Dosage: UNK

REACTIONS (2)
  - Cerebral haemorrhage [Unknown]
  - Haemorrhage [Unknown]
